FAERS Safety Report 7209761-X (Version None)
Quarter: 2011Q1

REPORT INFORMATION
  Report Type: 
  Country: None (occurrence: None)
  Receive Date: 20110104
  Receipt Date: 20101224
  Transmission Date: 20110831
  Serious: Yes (Death, Hospitalization, Other)
  Sender: FDA-Public Use
  Company Number: BR-ABBOTT-07P-020-0431236-00

PATIENT
  Sex: Female
  Weight: 53 kg

DRUGS (18)
  1. SIMVASTATIN [Concomitant]
     Indication: BLOOD CHOLESTEROL ABNORMAL
     Dates: start: 20061101, end: 20080101
  2. VENLAFAXINA [Concomitant]
     Indication: DEPRESSION
     Route: 048
     Dates: start: 19990101
  3. BRIMONIDINE TARTRATE [Concomitant]
     Indication: GLAUCOMA
     Route: 047
     Dates: start: 20050101
  4. HUMIRA [Suspect]
     Route: 058
     Dates: start: 20090501, end: 20101130
  5. ARAVA [Concomitant]
     Indication: RHEUMATOID ARTHRITIS
     Route: 048
  6. ATENOLOL [Concomitant]
     Indication: HYPERTENSION
     Route: 048
     Dates: start: 20071101
  7. BIMATOPROST [Concomitant]
     Indication: GLAUCOMA
     Dosage: 1 DROP IN EACH EYE
     Route: 047
     Dates: start: 20040101
  8. HUMIRA [Suspect]
  9. VALSARTAN [Concomitant]
     Indication: HYPERTENSION
     Route: 048
     Dates: start: 19990101
  10. GLIMEPIRIDE [Concomitant]
     Indication: DIABETES MELLITUS
     Route: 048
     Dates: start: 20090501
  11. OMEPRAZOLE [Concomitant]
     Indication: GASTRIC DISORDER
     Route: 048
     Dates: start: 19940101
  12. AZOPT [Concomitant]
     Indication: GLAUCOMA
     Dosage: 1 DROP IN EACH EYE
     Route: 047
     Dates: start: 20070101
  13. HUMIRA [Suspect]
     Indication: RHEUMATOID ARTHRITIS
     Dosage: APPLICATION
     Route: 058
     Dates: start: 20071101
  14. CRESTOR [Concomitant]
     Indication: BLOOD CHOLESTEROL ABNORMAL
     Route: 048
     Dates: start: 20080101
  15. CELECOXIB [Concomitant]
     Indication: RHEUMATOID ARTHRITIS
     Dosage: 1,2 OR 3 TABS DAILY
     Route: 048
     Dates: start: 19990101
  16. AMLODIPINE [Concomitant]
     Indication: HYPERTENSION
     Route: 048
  17. METFORMIN [Concomitant]
     Indication: DIABETES MELLITUS
     Route: 048
     Dates: start: 20040101
  18. ASPIRIN [Concomitant]
     Indication: THROMBOSIS PROPHYLAXIS
     Route: 048
     Dates: start: 20040101

REACTIONS (18)
  - CORONARY ARTERY OCCLUSION [None]
  - DYSLIPIDAEMIA [None]
  - CARDIAC FAILURE ACUTE [None]
  - ISCHAEMIA [None]
  - ARTERIOSCLEROSIS CORONARY ARTERY [None]
  - WHEEZING [None]
  - ANGINA PECTORIS [None]
  - RENAL ATROPHY [None]
  - CARDIOMYOPATHY [None]
  - MYOCARDIAL INFARCTION [None]
  - CAROTID ARTERY OCCLUSION [None]
  - DYSPNOEA [None]
  - RHEUMATOID ARTHRITIS [None]
  - COUGH [None]
  - ASTHMA [None]
  - SUFFOCATION FEELING [None]
  - ULCER [None]
  - PAIN IN EXTREMITY [None]
